FAERS Safety Report 7380697-7 (Version None)
Quarter: 2011Q1

REPORT INFORMATION
  Report Type: 
  Country: None (occurrence: None)
  Receive Date: 20110329
  Receipt Date: 20110314
  Transmission Date: 20110831
  Serious: No
  Sender: FDA-Public Use
  Company Number: US-PFIZER INC-2011011794

PATIENT
  Sex: Male

DRUGS (25)
  1. ALBUTEROL [Concomitant]
  2. SPIRIVA [Concomitant]
  3. MUCINEX [Concomitant]
  4. SORIATANE [Concomitant]
  5. SYNTHROID [Concomitant]
  6. FLUTICASONE [Concomitant]
  7. GENOTROPIN [Suspect]
     Dosage: 0.6 MG, 1X/DAY
     Route: 058
  8. FUROSEMIDE [Concomitant]
  9. LANTUS [Concomitant]
  10. ZITHROMAX [Concomitant]
  11. FLONASE [Concomitant]
  12. ADVAIR DISKUS 100/50 [Concomitant]
  13. VITAMIN D [Concomitant]
  14. STOOL SOFTENER [Concomitant]
  15. BACTROBAN [Concomitant]
  16. METOCLOPRAMIDE [Concomitant]
  17. IBUPROFEN [Concomitant]
  18. HYDROCODONE [Concomitant]
  19. LOVASTATIN [Concomitant]
  20. SPIRONOLACTONE [Concomitant]
  21. CYCLOBENZAPRINE [Concomitant]
  22. HUMULIN R [Concomitant]
  23. PREDNISONE [Concomitant]
  24. RANITIDINE [Concomitant]
  25. TESTOSTERONE [Concomitant]

REACTIONS (1)
  - CONSTIPATION [None]
